FAERS Safety Report 6617120-3 (Version None)
Quarter: 2010Q1

REPORT INFORMATION
  Report Type: 
  Country: None (occurrence: None)
  Receive Date: 20100307
  Receipt Date: 20090214
  Transmission Date: 20100710
  Serious: No
  Sender: FDA-Public Use
  Company Number: GB-BAYER-200824249GPV

PATIENT
  Age: 40 Year
  Sex: Female

DRUGS (1)
  1. ALEMTUZUMAB [Suspect]
     Indication: MULTIPLE SCLEROSIS
     Dosage: 100 MG TOTAL DOSE
     Route: 065

REACTIONS (2)
  - GOODPASTURE'S SYNDROME [None]
  - RENAL FAILURE ACUTE [None]
